FAERS Safety Report 17860589 (Version 1)
Quarter: 2020Q2

REPORT INFORMATION
  Report Type: Spontaneous
  Country: US (occurrence: US)
  Receive Date: 20200604
  Receipt Date: 20200604
  Transmission Date: 20200714
  Serious: No
  Sender: FDA-Public Use
  Company Number: US-SA-2020SA141887

PATIENT

DRUGS (1)
  1. DUPIXENT [Suspect]
     Active Substance: DUPILUMAB
     Dosage: 200 MG
     Route: 058
     Dates: start: 2019, end: 202004

REACTIONS (5)
  - Skin exfoliation [Unknown]
  - Rash macular [Unknown]
  - Dry mouth [Unknown]
  - Headache [Unknown]
  - Weight increased [Unknown]
